FAERS Safety Report 4463930-0 (Version None)
Quarter: 2004Q3

REPORT INFORMATION
  Report Type: 
  Country: None (occurrence: None)
  Receive Date: 20040929
  Receipt Date: 20040914
  Transmission Date: 20050211
  Serious: Yes (Hospitalization)
  Sender: FDA-Public Use
  Company Number: 2004-0007513

PATIENT
  Age: 33 Year
  Sex: Male

DRUGS (3)
  1. VIREAD [Suspect]
     Indication: HIV INFECTION
     Dosage: 300 MG, 1 IN 1 D, ORAL
     Route: 048
     Dates: start: 20040405, end: 20040712
  2. VIRACEPT [Suspect]
     Indication: HIV INFECTION
     Dosage: ORAL
     Route: 048
     Dates: start: 20040405, end: 20040712
  3. EPIVIR [Concomitant]

REACTIONS (8)
  - ANTI-HBC IGG ANTIBODY POSITIVE [None]
  - CHRONIC HEPATITIS [None]
  - CYTOLYTIC HEPATITIS [None]
  - CYTOMEGALOVIRUS ANTIBODY POSITIVE [None]
  - DRUG TOXICITY [None]
  - HERPES SIMPLEX SEROLOGY POSITIVE [None]
  - SPLENOMEGALY [None]
  - VERTIGO [None]
